FAERS Safety Report 4818188-7 (Version None)
Quarter: 2005Q4

REPORT INFORMATION
  Report Type: 
  Country: None (occurrence: None)
  Receive Date: 20051102
  Receipt Date: 20051020
  Transmission Date: 20060501
  Serious: Yes (Hospitalization, Disabling)
  Sender: FDA-Public Use
  Company Number: US-KINGPHARMUSA00001-K200501397

PATIENT
  Age: 91 Year
  Sex: Female

DRUGS (3)
  1. ALTACE [Suspect]
     Indication: ESSENTIAL HYPERTENSION
     Dosage: 5 MG, QD
     Route: 048
     Dates: start: 20050914, end: 20050916
  2. LORAZEPAM [Concomitant]
     Dosage: 2.5 MG, UNK
     Route: 048
  3. TIAPRIDE [Concomitant]
     Dosage: 50 MG, UNK
     Route: 048
     Dates: start: 20050607

REACTIONS (10)
  - AGITATION [None]
  - ARTHRALGIA [None]
  - BUNDLE BRANCH BLOCK RIGHT [None]
  - CONFUSIONAL STATE [None]
  - DEHYDRATION [None]
  - ECCHYMOSIS [None]
  - ELECTROCARDIOGRAM REPOLARISATION ABNORMALITY [None]
  - FALL [None]
  - HYPONATRAEMIA [None]
  - SOMNOLENCE [None]
